FAERS Safety Report 17623225 (Version 1)
Quarter: 2020Q2

REPORT INFORMATION
  Report Type: Spontaneous
  Country: CN (occurrence: CN)
  Receive Date: 20200403
  Receipt Date: 20200403
  Transmission Date: 20200713
  Serious: Yes (Other)
  Sender: FDA-Public Use
  Company Number: CN-ABBVIE-20P-035-3348026-00

PATIENT
  Age: 55 Year
  Sex: Female
  Weight: 55.8 kg

DRUGS (1)
  1. LIPANTHYL [Suspect]
     Active Substance: FENOFIBRATE
     Indication: LIPIDS INCREASED
     Route: 048
     Dates: start: 20200316, end: 20200327

REACTIONS (3)
  - Back pain [Recovering/Resolving]
  - Fatigue [Recovering/Resolving]
  - Rhabdomyolysis [Recovering/Resolving]

NARRATIVE: CASE EVENT DATE: 20200327
